FAERS Safety Report 10103822 (Version 7)
Quarter: 2014Q4

REPORT INFORMATION
  Report Type: Report from Study
  Country: CA (occurrence: CA)
  Receive Date: 20140424
  Receipt Date: 20141106
  Transmission Date: 20150528
  Serious: Yes (Death, Life-Threatening)
  Sender: FDA-Public Use
  Company Number: CA-ABBVIE-14P-028-1228542-00

PATIENT
  Age: 64 Year
  Sex: Male
  Weight: 66 kg

DRUGS (8)
  1. TRIAZIDE [Concomitant]
     Indication: HYPERTENSION
     Dates: start: 2005
  2. AVAPRO [Concomitant]
     Active Substance: IRBESARTAN
     Indication: HYPERTENSION
     Dates: start: 2008
  3. TYLENOL WITH CODEINE [Concomitant]
     Active Substance: ACETAMINOPHEN\CODEINE PHOSPHATE
     Indication: ABDOMINAL PAIN
     Dates: start: 20131226
  4. HUMIRA [Suspect]
     Active Substance: ADALIMUMAB
     Indication: PSORIASIS
     Route: 058
     Dates: start: 20080121
  5. HUMIRA [Suspect]
     Active Substance: ADALIMUMAB
     Route: 058
     Dates: start: 20100524, end: 20140402
  6. AMLODIPINE [Concomitant]
     Active Substance: AMLODIPINE BESYLATE
     Indication: HYPERTENSION
     Route: 048
     Dates: start: 20080308
  7. TYLENOL WITH CODEINE [Concomitant]
     Active Substance: ACETAMINOPHEN\CODEINE PHOSPHATE
     Indication: PSORIATIC ARTHROPATHY
     Route: 048
     Dates: start: 1989, end: 20140604
  8. LORAZEPAM. [Concomitant]
     Active Substance: LORAZEPAM
     Indication: ANXIETY
     Route: 048
     Dates: start: 20080308

REACTIONS (2)
  - Pancreatic carcinoma [Fatal]
  - Metastases to liver [Recovered/Resolved]

NARRATIVE: CASE EVENT DATE: 20140326
